FAERS Safety Report 15721363 (Version 1)
Quarter: 2018Q4

REPORT INFORMATION
  Report Type: Spontaneous
  Country: GB (occurrence: GB)
  Receive Date: 20181214
  Receipt Date: 20181214
  Transmission Date: 20190205
  Serious: Yes (Disabling, Other)
  Sender: FDA-Public Use
  Company Number: GB-AUROBINDO-AUR-APL-2018-060075

PATIENT
  Age: 49 Year
  Sex: Female
  Weight: 66 kg

DRUGS (2)
  1. ENZIRA [Concomitant]
     Indication: ANTIVIRAL PROPHYLAXIS
     Dosage: 0.5 MILLILITER, ONCE A DAY
     Route: 030
     Dates: start: 20081031, end: 20081031
  2. FLUCONAZOLE. [Suspect]
     Active Substance: FLUCONAZOLE
     Indication: VULVOVAGINAL CANDIDIASIS
     Dosage: 15 MILLIGRAM
     Route: 048
     Dates: start: 20081031

REACTIONS (2)
  - Eye swelling [Recovered/Resolved]
  - Dyspnoea [Recovered/Resolved]

NARRATIVE: CASE EVENT DATE: 20081031
